FAERS Safety Report 7747516-8 (Version None)
Quarter: 2011Q3

REPORT INFORMATION
  Report Type: 
  Country: None (occurrence: None)
  Receive Date: 20110913
  Receipt Date: 20110909
  Transmission Date: 20111222
  Serious: Yes (Other)
  Sender: FDA-Public Use
  Company Number: AT-PFIZER INC-2011213562

PATIENT
  Sex: Female

DRUGS (2)
  1. ALPRAZOLAM [Suspect]
     Indication: MUSCLE SPASMS
     Dosage: .5 MG AT HALF A TABLET AT UP TO 3 TIMES DAILY
     Route: 048
     Dates: start: 20110201
  2. ALPRAZOLAM [Suspect]
     Indication: MUSCULOSKELETAL STIFFNESS

REACTIONS (3)
  - MUSCULOSKELETAL STIFFNESS [None]
  - PAIN [None]
  - CONTRAINDICATION TO MEDICAL TREATMENT [None]
